FAERS Safety Report 5952108-7 (Version None)
Quarter: 2008Q4

REPORT INFORMATION
  Report Type: 
  Country: None (occurrence: None)
  Receive Date: 20081113
  Receipt Date: 20080418
  Transmission Date: 20090506
  Serious: No
  Sender: FDA-Public Use
  Company Number: A0723660A

PATIENT
  Age: 74 Year
  Sex: Female

DRUGS (10)
  1. CARVEDILOL [Suspect]
     Dosage: 25MG TWICE PER DAY
     Route: 048
     Dates: start: 20080328, end: 20080331
  2. COREG CR [Suspect]
     Dosage: 80MG PER DAY
     Route: 048
     Dates: start: 20080415
  3. LIPITOR [Concomitant]
  4. CALCIUM [Concomitant]
  5. PRILOSEC [Concomitant]
  6. ZANTAC [Concomitant]
  7. AROMASIN [Concomitant]
  8. FLEXERIL [Concomitant]
  9. HYDROCODONE [Concomitant]
  10. CARAFATE [Concomitant]

REACTIONS (2)
  - MUSCLE SPASMS [None]
  - PALPITATIONS [None]
